FAERS Safety Report 16422744 (Version 2)
Quarter: 2020Q1

REPORT INFORMATION
  Report Type: Report from Study
  Country: PE (occurrence: PE)
  Receive Date: 20190612
  Receipt Date: 20200125
  Transmission Date: 20200409
  Serious: Yes (Death, Other)
  Sender: FDA-Public Use
  Company Number: PE-TAKEDA-2019TUS036093

PATIENT
  Age: 49 Year
  Sex: Male

DRUGS (1)
  1. IXAZOMIB [Suspect]
     Active Substance: IXAZOMIB
     Indication: PLASMA CELL MYELOMA
     Dosage: 4 MILLIGRAM
     Route: 048
     Dates: start: 20190522

REACTIONS (3)
  - Plasmacytoma [Unknown]
  - Death [Fatal]
  - Leukaemia [Unknown]

NARRATIVE: CASE EVENT DATE: 201907
